FAERS Safety Report 9468334 (Version 1)
Quarter: 2013Q3

REPORT INFORMATION
  Report Type: Spontaneous
  Country: US (occurrence: US)
  Receive Date: 20130821
  Receipt Date: 20130821
  Transmission Date: 20140515
  Serious: No
  Sender: FDA-Public Use
  Company Number: US-PFIZER INC-2013240823

PATIENT
  Sex: Male

DRUGS (18)
  1. CHANTIX [Suspect]
     Dosage: UNK
  2. CHANTIX [Suspect]
     Dosage: UNK
  3. TECFIDERA [Concomitant]
     Dosage: UNK
  4. LEVOTHYROXINE [Concomitant]
     Dosage: UNK
  5. CITALOPRAM [Concomitant]
     Dosage: UNK
  6. METFORMIN [Concomitant]
     Dosage: UNK
  7. FENOFIBRATE [Concomitant]
     Dosage: UNK
  8. REGLAN [Concomitant]
     Dosage: UNK
  9. OMEPRAZOLE [Concomitant]
     Dosage: UNK
  10. DRONABINOL [Concomitant]
     Dosage: UNK
  11. FENTANYL [Concomitant]
     Dosage: UNK
  12. CRESTOR [Concomitant]
     Dosage: UNK
  13. WARFARIN [Concomitant]
     Dosage: UNK
  14. LOVAZA [Concomitant]
     Dosage: UNK
  15. BACLOFEN [Concomitant]
     Dosage: UNK
  16. ALPRAZOLAM [Concomitant]
     Dosage: UNK
  17. ATENOLOL [Concomitant]
     Dosage: UNK
  18. SYMBICORT [Concomitant]
     Dosage: UNK

REACTIONS (3)
  - VIIth nerve paralysis [Unknown]
  - Drug ineffective [Unknown]
  - Parosmia [Unknown]
